FAERS Safety Report 5239538-6 (Version None)
Quarter: 2007Q1

REPORT INFORMATION
  Report Type: 
  Country: None (occurrence: None)
  Receive Date: 20061208
  Receipt Date: 20060515
  Transmission Date: 20070707
  Serious: Yes (Other)
  Sender: FDA-Public Use
  Company Number: 2006UW09528

PATIENT
  Age: 62 Year
  Sex: Female
  Weight: 74.389 kg

DRUGS (9)
  1. CRESTOR [Suspect]
     Indication: BLOOD CHOLESTEROL INCREASED
     Dosage: 10 MG PO
     Route: 048
     Dates: start: 20060401
  2. BUSPAR [Concomitant]
  3. PROVIGIL [Concomitant]
  4. METFORMIN HCL [Concomitant]
  5. CLONOPIN [Concomitant]
  6. VITAMINS [Concomitant]
  7. DHTA [Concomitant]
  8. WATER PILLS [Concomitant]
  9. POTASSIUM ACETATE [Concomitant]

REACTIONS (3)
  - DRY EYE [None]
  - HYPERHIDROSIS [None]
  - MYALGIA [None]
